FAERS Safety Report 14293084 (Version 1)
Quarter: 2017Q4

REPORT INFORMATION
  Report Type: Spontaneous
  Country: US (occurrence: US)
  Receive Date: 20171215
  Receipt Date: 20171215
  Transmission Date: 20180321
  Serious: Yes (Hospitalization)
  Sender: FDA-Public Use
  Company Number: PHEH2017US039694

PATIENT
  Age: 75 Year
  Sex: Male
  Weight: 62.5 kg

DRUGS (2)
  1. ZOLEDRONATE [Suspect]
     Active Substance: ZOLEDRONIC ACID
     Indication: OSTEOPOROSIS
     Dosage: 5 MG, ONCE/SINGLE
     Route: 042
     Dates: start: 20171113
  2. ZOLEDRONATE [Suspect]
     Active Substance: ZOLEDRONIC ACID
     Indication: LUMBAR VERTEBRAL FRACTURE

REACTIONS (4)
  - Anaemia [Recovering/Resolving]
  - Transaminases increased [Recovering/Resolving]
  - Fatigue [Unknown]
  - Jaundice [Unknown]

NARRATIVE: CASE EVENT DATE: 20171117
